FAERS Safety Report 5361275-8 (Version None)
Quarter: 2007Q2

REPORT INFORMATION
  Report Type: 
  Country: None (occurrence: None)
  Receive Date: 20070614
  Receipt Date: 20070521
  Transmission Date: 20071010
  Serious: Yes (Hospitalization, Disabling, Other)
  Sender: FDA-Public Use
  Company Number: 2007SP011733

PATIENT

DRUGS (2)
  1. CELESTONE CHRONODOSE (BETAMETHASONE SODIUM PHOSPHATE/ACETATE) (2 ML) [Suspect]
     Indication: DRUG USE FOR UNKNOWN INDICATION
  2. SCARDINIBSA (NO PREF. NAME) (2 ML) [Suspect]
     Indication: DRUG USE FOR UNKNOWN INDICATION

REACTIONS (1)
  - ARTHRITIS BACTERIAL [None]
